FAERS Safety Report 6151392-7 (Version None)
Quarter: 2009Q2

REPORT INFORMATION
  Report Type: 
  Country: None (occurrence: None)
  Receive Date: 20090410
  Receipt Date: 20090403
  Transmission Date: 20091009
  Serious: Yes (Hospitalization)
  Sender: FDA-Public Use
  Company Number: US-BIOGENIDEC-2008BI004318

PATIENT
  Age: 26 Year
  Sex: Female

DRUGS (2)
  1. TYSABRI [Suspect]
     Indication: MULTIPLE SCLEROSIS
     Route: 042
     Dates: start: 20070926
  2. PHENERGAN [Concomitant]

REACTIONS (3)
  - ADVERSE DRUG REACTION [None]
  - MEDICAL DEVICE REMOVAL [None]
  - OSTEONECROSIS [None]
